FAERS Safety Report 11825693 (Version 6)
Quarter: 2019Q1

REPORT INFORMATION
  Report Type: Spontaneous
  Country: US (occurrence: US)
  Receive Date: 20151211
  Receipt Date: 20190330
  Transmission Date: 20190417
  Serious: No
  Sender: FDA-Public Use
  Company Number: US-JNJFOC-20150400371

PATIENT
  Sex: Male

DRUGS (4)
  1. HYDROCHLOROTHIAZIDE. [Concomitant]
     Active Substance: HYDROCHLOROTHIAZIDE
  2. IMBRUVICA [Suspect]
     Active Substance: IBRUTINIB
     Indication: CHRONIC LYMPHOCYTIC LEUKAEMIA
     Dosage: 420 MG, QD
     Route: 048
     Dates: start: 20150226
  3. LOSARTAN POTASSIUM. [Concomitant]
     Active Substance: LOSARTAN POTASSIUM
  4. PERCOCET [Concomitant]
     Active Substance: ACETAMINOPHEN\OXYCODONE HYDROCHLORIDE

REACTIONS (17)
  - Weight increased [Unknown]
  - Insomnia [Unknown]
  - Dyspepsia [Unknown]
  - Stomatitis [Unknown]
  - Toothache [Unknown]
  - Contusion [Not Recovered/Not Resolved]
  - Aphthous ulcer [Unknown]
  - Infection [Unknown]
  - Sinusitis [Unknown]
  - Pain in jaw [Unknown]
  - Rash pruritic [Unknown]
  - Angina bullosa haemorrhagica [Not Recovered/Not Resolved]
  - Stress [Unknown]
  - Arthralgia [Unknown]
  - Vitreous floaters [Unknown]
  - Blood blister [Recovering/Resolving]
  - White blood cell count abnormal [Unknown]

NARRATIVE: CASE EVENT DATE: 2015
